FAERS Safety Report 5173434-8 (Version None)
Quarter: 2006Q4

REPORT INFORMATION
  Report Type: 
  Country: None (occurrence: None)
  Receive Date: 20061208
  Receipt Date: 20061208
  Transmission Date: 20070319
  Serious: Yes (Death, Hospitalization)
  Sender: FDA-Public Use
  Company Number: None

PATIENT
  Age: 45 Year
  Sex: Male
  Weight: 50.48 kg

DRUGS (5)
  1. CETUXIMAB (CETUXIMAB) [Suspect]
     Indication: OESOPHAGEAL CARCINOMA
     Dosage: 361 MG/M2 I.V.
     Route: 042
     Dates: start: 20060905, end: 20061016
  2. CISPLATIN [Suspect]
     Indication: OESOPHAGEAL CARCINOMA
     Dosage: 45 MG I.V.
     Route: 042
     Dates: start: 20060905, end: 20061016
  3. IRINOTECAN HCL [Suspect]
     Indication: OESOPHAGEAL CARCINOMA
     Dosage: 94 MG I.V.
     Route: 042
     Dates: start: 20060905, end: 20061016
  4. RADIATION THERAPY [Suspect]
     Indication: OESOPHAGEAL CARCINOMA
     Dates: end: 20061020
  5. MORPHINE SULFATE [Concomitant]

REACTIONS (14)
  - CONDITION AGGRAVATED [None]
  - FAILURE TO THRIVE [None]
  - GASTROINTESTINAL NECROSIS [None]
  - HAEMOGLOBIN DECREASED [None]
  - HYPERKALAEMIA [None]
  - HYPOKALAEMIA [None]
  - INTESTINAL OBSTRUCTION [None]
  - LARGE INTESTINE PERFORATION [None]
  - MALNUTRITION [None]
  - NEUTROPENIA [None]
  - OBSTRUCTION [None]
  - ORAL INTAKE REDUCED [None]
  - PAIN [None]
  - PNEUMATOSIS [None]
